FAERS Safety Report 18275174 (Version 2)
Quarter: 2024Q4

REPORT INFORMATION
  Report Type: Report from Study
  Country: US (occurrence: US)
  Receive Date: 20200916
  Receipt Date: 20241223
  Transmission Date: 20250115
  Serious: Yes (Death, Hospitalization)
  Sender: JOHNSON AND JOHNSON
  Company Number: US-ACTELION-A-NJ2019-195208

PATIENT
  Age: 69 Year
  Sex: Male

DRUGS (2)
  1. OPSUMIT [Suspect]
     Active Substance: MACITENTAN
     Indication: Pulmonary arterial hypertension
     Dosage: 10 MG, QD
     Route: 048
     Dates: start: 20190914, end: 20200806
  2. MACITENTAN\TADALAFIL [Suspect]
     Active Substance: MACITENTAN\TADALAFIL
     Indication: Product used for unknown indication
     Route: 048

REACTIONS (4)
  - Death [Fatal]
  - Hospitalisation [Unknown]
  - Malaise [Unknown]
  - Rehabilitation therapy [Unknown]

NARRATIVE: CASE EVENT DATE: 20200806
